FAERS Safety Report 19639419 (Version 2)
Quarter: 2022Q3

REPORT INFORMATION
  Report Type: Report from Study
  Country: NL (occurrence: NL)
  Receive Date: 20210730
  Receipt Date: 20220915
  Transmission Date: 20221026
  Serious: Yes (Hospitalization, Other)
  Sender: FDA-Public Use
  Company Number: NL-NOVARTISPH-NVSC2021NL165327

PATIENT
  Sex: Female

DRUGS (3)
  1. OCTREOTIDE ACETATE [Suspect]
     Active Substance: OCTREOTIDE ACETATE
     Indication: Neuroendocrine tumour
     Dosage: UNK
     Route: 065
  2. OCTREOTIDE ACETATE [Suspect]
     Active Substance: OCTREOTIDE ACETATE
     Dosage: 30 MG, Q4W
     Route: 030
  3. OCTREOTIDE ACETATE [Suspect]
     Active Substance: OCTREOTIDE ACETATE

REACTIONS (4)
  - Gastrointestinal haemorrhage [Recovering/Resolving]
  - Gastric ulcer [Unknown]
  - Haemoglobin decreased [Unknown]
  - Faeces discoloured [Unknown]
